FAERS Safety Report 7340430-1 (Version None)
Quarter: 2011Q1

REPORT INFORMATION
  Report Type: 
  Country: None (occurrence: None)
  Receive Date: 20110309
  Receipt Date: 20110301
  Transmission Date: 20110831
  Serious: Yes (Other)
  Sender: FDA-Public Use
  Company Number: ES-JNJFOC-20110300947

PATIENT
  Age: 74 Year
  Sex: Male

DRUGS (7)
  1. SPIRIVA [Concomitant]
     Route: 065
  2. AMILORIDE HCL AND HYDROCHLOROTHIAZIDE [Concomitant]
     Route: 065
  3. OXYGEN [Concomitant]
     Route: 065
  4. TAVANIC [Suspect]
     Indication: RESPIRATORY TRACT INFECTION
     Route: 048
  5. ALDACTONE [Concomitant]
     Dosage: 25 (UNITS UNSPECIFIED)
     Route: 065
  6. ALMAX [Concomitant]
     Route: 065
  7. SYMBICORT [Concomitant]
     Route: 065

REACTIONS (4)
  - PYREXIA [None]
  - DELIRIUM [None]
  - APHASIA [None]
  - CONFUSIONAL STATE [None]
